FAERS Safety Report 8133218-5 (Version None)
Quarter: 2012Q1

REPORT INFORMATION
  Report Type: 
  Country: None (occurrence: None)
  Receive Date: 20120213
  Receipt Date: 20120208
  Transmission Date: 20120608
  Serious: Yes (Other)
  Sender: FDA-Public Use
  Company Number: PHEH2012US001637

PATIENT
  Sex: Female
  Weight: 166 kg

DRUGS (7)
  1. CRESTOR [Concomitant]
     Indication: HYPERLIPIDAEMIA
     Dosage: UNK UKN, QD
  2. SYNTHROID [Concomitant]
     Indication: BASEDOW'S DISEASE
     Dosage: UNK UKN, QD
     Route: 048
  3. LYRICA [Concomitant]
     Dosage: 50 MG, QD
     Route: 048
  4. ASPIRIN [Concomitant]
     Dosage: UNK UKN, QD
     Route: 048
  5. RECLAST [Suspect]
     Indication: OSTEOPOROSIS
     Dosage: 5 MG PER 100 ML, ONCE YEARLY
     Route: 042
     Dates: start: 20111114
  6. CALCIUM CARBONATE [Concomitant]
     Dosage: UNK UKN, QD
     Route: 048
  7. AMITRIPTYLINE HCL [Concomitant]
     Dosage: UNK UKN, QD
     Route: 048

REACTIONS (6)
  - IRITIS [None]
  - VISUAL ACUITY REDUCED [None]
  - VISION BLURRED [None]
  - EYE INFECTION [None]
  - BLINDNESS UNILATERAL [None]
  - EYE PAIN [None]
